FAERS Safety Report 7927258-6 (Version None)
Quarter: 2011Q4

REPORT INFORMATION
  Report Type: 
  Country: None (occurrence: None)
  Receive Date: 20111116
  Receipt Date: 20111101
  Transmission Date: 20120403
  Serious: Yes (Hospitalization, Other)
  Sender: FDA-Public Use
  Company Number: 2011AP002574

PATIENT
  Age: 55 Year
  Sex: Female

DRUGS (3)
  1. LOMOTIL [Concomitant]
  2. SERTRALINE HYDROCHLORIDE [Suspect]
     Indication: ANXIETY
     Dosage: 50 MG;QD;PO
     Route: 048
     Dates: start: 20110915, end: 20110915
  3. IRBESARTAN [Concomitant]

REACTIONS (3)
  - AKATHISIA [None]
  - ANAPHYLACTIC REACTION [None]
  - MUSCLE SPASMS [None]
